FAERS Safety Report 10499305 (Version 1)
Quarter: 2014Q4

REPORT INFORMATION
  Report Type: Spontaneous
  Country: US (occurrence: US)
  Receive Date: 20141006
  Receipt Date: 20141006
  Transmission Date: 20150528
  Serious: No
  Sender: FDA-Public Use
  Company Number: US-AMGEN INC.-USASP2014026057

PATIENT

DRUGS (5)
  1. XELODA [Concomitant]
     Active Substance: CAPECITABINE
  2. CARBOPLATIN. [Concomitant]
     Active Substance: CARBOPLATIN
  3. GEMZAR [Concomitant]
     Active Substance: GEMCITABINE HYDROCHLORIDE
  4. XGEVA [Suspect]
     Active Substance: DENOSUMAB
     Indication: METASTASES TO BONE
     Route: 065
  5. AVASTIN [Concomitant]
     Active Substance: BEVACIZUMAB

REACTIONS (3)
  - Constipation [Unknown]
  - Flushing [Unknown]
  - Full blood count decreased [Unknown]
